FAERS Safety Report 19139057 (Version 1)
Quarter: 2021Q2

REPORT INFORMATION
  Report Type: Spontaneous
  Country: PL (occurrence: PL)
  Receive Date: 20210415
  Receipt Date: 20210415
  Transmission Date: 20210717
  Serious: Yes (Death, Hospitalization, Other)
  Sender: FDA-Public Use
  Company Number: PL-MYLANLABS-2021M1021885

PATIENT
  Age: 71 Year
  Sex: Female

DRUGS (1)
  1. PREGABALIN MYLAN [Suspect]
     Active Substance: PREGABALIN
     Indication: PRODUCT USED FOR UNKNOWN INDICATION
     Dosage: UNK

REACTIONS (7)
  - Death [Fatal]
  - Cardiac arrest [Unknown]
  - Seizure [Unknown]
  - Oedema [Unknown]
  - Visual impairment [Unknown]
  - Condition aggravated [Unknown]
  - Syncope [Unknown]
